FAERS Safety Report 5920254-X (Version None)
Quarter: 2008Q4

REPORT INFORMATION
  Report Type: 
  Country: None (occurrence: None)
  Receive Date: 20081016
  Receipt Date: 20081015
  Transmission Date: 20090506
  Serious: Yes (Life-Threatening, Hospitalization, Other)
  Sender: FDA-Public Use
  Company Number: PL-BRISTOL-MYERS SQUIBB COMPANY-14370837

PATIENT

DRUGS (4)
  1. VIDEX [Suspect]
     Indication: VIRAL INFECTION
     Route: 048
     Dates: start: 20061130, end: 20081002
  2. ZIAGEN [Suspect]
     Indication: VIRAL INFECTION
     Dosage: 1 DOSAGE FORM = 1 TAB 2X1TABL
     Dates: start: 20061130, end: 20081002
  3. REYATAZ [Concomitant]
     Indication: VIRAL INFECTION
     Dosage: 1 DOSAGE FORM = 150(UNITS NOT SPECIFIED) REYATAZ 150, 1X2TABL FROM 30 NOVEMBER
  4. NORVIR [Concomitant]
     Indication: VIRAL INFECTION
     Dosage: 1 DOSAGE FORM = 100(UNITS NOT SPECIFIED) NORVIR 100, 1X1TABL,FROM 30 NOVEMBER

REACTIONS (2)
  - CORONARY ARTERY OCCLUSION [None]
  - MYOCARDIAL INFARCTION [None]
